FAERS Safety Report 8052599-4 (Version None)
Quarter: 2012Q1

REPORT INFORMATION
  Report Type: 
  Country: None (occurrence: None)
  Receive Date: 20120118
  Receipt Date: 20120111
  Transmission Date: 20120608
  Serious: Yes (Life-Threatening, Other)
  Sender: FDA-Public Use
  Company Number: IT-BAYER-2012-003606

PATIENT
  Age: 66 Year
  Sex: Male

DRUGS (11)
  1. AMINO ACIDS [Concomitant]
     Indication: PROPHYLAXIS
     Dosage: UNK
     Route: 048
  2. NITROGLYCERIN [Concomitant]
     Indication: ISCHAEMIC CARDIOMYOPATHY
     Dosage: 10 MG, DAILY
     Route: 062
  3. PEPTAZOL [Concomitant]
     Indication: PROPHYLAXIS AGAINST GASTROINTESTINAL ULCER
     Dosage: 40 MG, DAILY
     Route: 048
  4. NEXAVAR [Suspect]
     Indication: HEPATIC NEOPLASM MALIGNANT NON-RESECTABLE
     Dosage: 400 MG, DAILY
     Route: 048
     Dates: start: 20110805, end: 20111123
  5. CARVEDILOL [Concomitant]
     Indication: ISCHAEMIC CARDIOMYOPATHY
     Dosage: 13 MG, DAILY
     Route: 048
  6. PLAVIX [Concomitant]
     Indication: THROMBOSIS PROPHYLAXIS
     Dosage: 75 MG, DAILY
     Route: 048
  7. ATORVASTATIN CALCIUM [Concomitant]
     Indication: HYPERCHOLESTEROLAEMIA
     Dosage: 20 MG, DAILY
     Route: 048
  8. CAPOTEN [Concomitant]
     Indication: ISCHAEMIC CARDIOMYOPATHY
     Dosage: 50 MG, DAILY
     Route: 048
  9. CORDARONE [Concomitant]
     Indication: ARRHYTHMIA SUPRAVENTRICULAR
     Dosage: 200 MG, DAILY
     Route: 048
  10. LASIX [Concomitant]
     Indication: ISCHAEMIC CARDIOMYOPATHY
     Dosage: 50 MG, DAILY
     Route: 048
  11. PORTOLAC [Concomitant]
     Indication: HEPATIC CIRRHOSIS
     Dosage: 1 DF, DAILY
     Route: 048

REACTIONS (6)
  - THROMBOSIS [None]
  - ENCEPHALOPATHY [None]
  - ASTHENIA [None]
  - DIARRHOEA [None]
  - RECTAL HAEMORRHAGE [None]
  - WEIGHT DECREASED [None]
